FAERS Safety Report 8580641-0 (Version None)
Quarter: 2012Q3

REPORT INFORMATION
  Report Type: 
  Country: None (occurrence: None)
  Receive Date: 20120809
  Receipt Date: 20120801
  Transmission Date: 20120928
  Serious: Yes (Hospitalization)
  Sender: FDA-Public Use
  Company Number: US-BIOGENIDEC-2012BI029579

PATIENT
  Age: 28 Year
  Sex: Female

DRUGS (3)
  1. TYSABRI [Suspect]
     Indication: MULTIPLE SCLEROSIS
     Route: 042
     Dates: start: 20110401
  2. TYSABRI [Suspect]
     Route: 042
     Dates: end: 20120615
  3. TYSABRI [Suspect]
     Route: 042
     Dates: start: 20071221, end: 20101022

REACTIONS (1)
  - GASTROINTESTINAL DISORDER [None]
